FAERS Safety Report 4845914-3 (Version None)
Quarter: 2005Q4

REPORT INFORMATION
  Report Type: 
  Country: None (occurrence: None)
  Receive Date: 20051201
  Receipt Date: 20051118
  Transmission Date: 20060501
  Serious: Yes (Other)
  Sender: FDA-Public Use
  Company Number: 2005159199

PATIENT
  Age: 44 Year
  Sex: Male
  Weight: 86.1834 kg

DRUGS (3)
  1. VIAGRA [Suspect]
     Indication: ERECTILE DYSFUNCTION
     Dosage: 50 MG)
  2. LOMOTIL [Suspect]
     Indication: FREQUENT BOWEL MOVEMENTS
     Dates: start: 20050101, end: 20051101
  3. LIPITOR [Concomitant]

REACTIONS (8)
  - DIZZINESS [None]
  - FLUSHING [None]
  - FREQUENT BOWEL MOVEMENTS [None]
  - HYPERSENSITIVITY [None]
  - IRRITABLE BOWEL SYNDROME [None]
  - MYOPIA [None]
  - SOMNOLENCE [None]
  - VISION BLURRED [None]
